FAERS Safety Report 12289568 (Version 1)
Quarter: 2016Q2

REPORT INFORMATION
  Report Type: Spontaneous
  Country: US (occurrence: None)
  Receive Date: 20160420
  Receipt Date: 20160420
  Transmission Date: 20160815
  Serious: No
  Sender: FDA-Public Use
  Company Number: None

PATIENT
  Age: 54 Year
  Sex: Male

DRUGS (3)
  1. MATULANE [Concomitant]
     Active Substance: PROCARBAZINE HYDROCHLORIDE
  2. GLEOSTINE [Suspect]
     Active Substance: LOMUSTINE
     Indication: BRAIN NEOPLASM MALIGNANT
     Route: 048
     Dates: start: 20151210
  3. GLEOSTINE [Suspect]
     Active Substance: LOMUSTINE
     Indication: BRAIN NEOPLASM MALIGNANT
     Route: 048
     Dates: start: 20151210

REACTIONS (2)
  - Amnesia [None]
  - Fatigue [None]

NARRATIVE: CASE EVENT DATE: 201604
